FAERS Safety Report 15172483 (Version 1)
Quarter: 2018Q3

REPORT INFORMATION
  Report Type: Spontaneous
  Country: GB (occurrence: GB)
  Receive Date: 20180720
  Receipt Date: 20180720
  Transmission Date: 20181010
  Serious: Yes (Other)
  Sender: FDA-Public Use
  Company Number: PHHY2018GB051195

PATIENT
  Age: 70 Year
  Sex: Female
  Weight: 79.37 kg

DRUGS (1)
  1. TERBINAFINE. [Suspect]
     Active Substance: TERBINAFINE
     Indication: ONYCHOMYCOSIS
     Dosage: 250 MG, UNK
     Route: 048
     Dates: start: 20180421, end: 20180430

REACTIONS (3)
  - Pruritus [Recovering/Resolving]
  - Hypersensitivity [Recovering/Resolving]
  - Papule [Recovering/Resolving]

NARRATIVE: CASE EVENT DATE: 20180429
